FAERS Safety Report 12352177 (Version 1)
Quarter: 2016Q2

REPORT INFORMATION
  Report Type: Spontaneous
  Country: FR (occurrence: FR)
  Receive Date: 20160510
  Receipt Date: 20160510
  Transmission Date: 20160815
  Serious: Yes (Death, Hospitalization, Other)
  Sender: FDA-Public Use
  Company Number: FR-BRISTOL-MYERS SQUIBB COMPANY-BMS-2016-034435

PATIENT
  Age: 57 Year
  Sex: Female

DRUGS (2)
  1. COUMADINE [Suspect]
     Active Substance: WARFARIN SODIUM
     Dosage: 1.5 MG, QD
     Route: 048
     Dates: end: 20160306
  2. COUMADINE [Suspect]
     Active Substance: WARFARIN SODIUM
     Indication: PRODUCT USED FOR UNKNOWN INDICATION
     Dosage: 0.75 MG, QD
     Route: 048

REACTIONS (5)
  - Subdural haematoma [Fatal]
  - Fall [Fatal]
  - Craniocerebral injury [Fatal]
  - Meningorrhagia [Fatal]
  - Transfusion [Unknown]

NARRATIVE: CASE EVENT DATE: 20160305
